FAERS Safety Report 9490679 (Version 1)
Quarter: 2013Q3

REPORT INFORMATION
  Report Type: Spontaneous
  Country: GB (occurrence: None)
  Receive Date: 20130826
  Receipt Date: 20130826
  Transmission Date: 20140515
  Serious: Yes (Disabling, Other)
  Sender: FDA-Public Use
  Company Number: 1860971

PATIENT
  Age: 74 Year
  Sex: Female

DRUGS (1)
  1. MIDAZOLAM [Suspect]
     Indication: SEDATION
     Route: 042
     Dates: start: 20100907

REACTIONS (4)
  - Pain [None]
  - Extravasation [None]
  - Arthropathy [None]
  - Movement disorder [None]
